FAERS Safety Report 9256103 (Version 1)
Quarter: 2013Q2

REPORT INFORMATION
  Report Type: Spontaneous
  Country: US (occurrence: US)
  Receive Date: 20130425
  Receipt Date: 20130425
  Transmission Date: 20140414
  Serious: No
  Sender: FDA-Public Use
  Company Number: US-AMGEN-USASP2012037680

PATIENT
  Age: 55 Year
  Sex: Female

DRUGS (4)
  1. NEULASTA [Suspect]
     Indication: CHEMOTHERAPY
     Dosage: 6 MG, UNK
     Dates: start: 201205
  2. ADRIAMYCIN [Concomitant]
     Indication: BREAST CANCER STAGE III
  3. CYTOXAN [Concomitant]
     Indication: BREAST CANCER STAGE III
  4. TAXOL [Concomitant]
     Indication: BREAST CANCER STAGE III

REACTIONS (4)
  - Rash erythematous [Recovered/Resolved]
  - Influenza like illness [Not Recovered/Not Resolved]
  - Nausea [Not Recovered/Not Resolved]
  - Bone pain [Not Recovered/Not Resolved]
